FAERS Safety Report 8306340-8 (Version None)
Quarter: 2012Q2

REPORT INFORMATION
  Report Type: 
  Country: None (occurrence: None)
  Receive Date: 20120423
  Receipt Date: 20120403
  Transmission Date: 20120825
  Serious: Yes (Hospitalization, Other)
  Sender: FDA-Public Use
  Company Number: MK-BAXTER-2012BAX002150

PATIENT
  Sex: Male

DRUGS (1)
  1. KIOVIG [Suspect]
     Dosage: 5G/50ML
     Route: 042
     Dates: start: 20120127, end: 20120127

REACTIONS (5)
  - PYREXIA [None]
  - TACHYCARDIA [None]
  - CYANOSIS [None]
  - BODY TEMPERATURE INCREASED [None]
  - VERTIGO [None]
